FAERS Safety Report 5108735-2 (Version None)
Quarter: 2006Q3

REPORT INFORMATION
  Report Type: 
  Country: None (occurrence: None)
  Receive Date: 20060914
  Receipt Date: 20060914
  Transmission Date: 20061208
  Serious: Yes (Other)
  Sender: FDA-Public Use
  Company Number: None

PATIENT
  Age: 12 Year
  Sex: Male
  Weight: 52.1637 kg

DRUGS (1)
  1. SINEMET [Suspect]
     Indication: DYSTONIA
     Dosage: 1 1/2 TABS TID PO
     Route: 048
     Dates: start: 20060710

REACTIONS (1)
  - NO ADVERSE EFFECT [None]
